FAERS Safety Report 7216618-7 (Version None)
Quarter: 2011Q1

REPORT INFORMATION
  Report Type: 
  Country: None (occurrence: None)
  Receive Date: 20110110
  Receipt Date: 20101229
  Transmission Date: 20110831
  Serious: No
  Sender: FDA-Public Use
  Company Number: US-BIOGENIDEC-2010BI031608

PATIENT
  Age: 50 Year
  Sex: Female

DRUGS (1)
  1. TYSABRI [Suspect]
     Indication: MULTIPLE SCLEROSIS
     Route: 042
     Dates: start: 20080304, end: 20101130

REACTIONS (8)
  - GAIT DISTURBANCE [None]
  - AGITATION [None]
  - TREMOR [None]
  - MUSCULOSKELETAL STIFFNESS [None]
  - FEELING HOT [None]
  - MYALGIA [None]
  - FATIGUE [None]
  - HYPERSENSITIVITY [None]
